FAERS Safety Report 8801921 (Version 1)
Quarter: 2012Q4

REPORT INFORMATION
  Report Type: 
  Country: CA (occurrence: CA)
  Receive Date: 20120921
  Receipt Date: 20120921
  Transmission Date: 20130627
  Serious: Yes (Congenital Anomaly)
  Sender: FDA-Public Use
  Company Number: CA-WATSON-2012-15993

PATIENT
  Sex: Female

DRUGS (1)
  1. LOVASTATIN (UNKNOWN) [Suspect]
     Indication: PRODUCT USED FOR UNKNOWN INDICATION
     Dosage: 20 mg, daily
     Route: 064

REACTIONS (2)
  - Heart disease congenital [Unknown]
  - Maternal drugs affecting foetus [None]
